FAERS Safety Report 23933954 (Version 1)
Quarter: 2024Q2

REPORT INFORMATION
  Report Type: Other
  Country: US (occurrence: US)
  Receive Date: 20240603
  Receipt Date: 20240603
  Transmission Date: 20240715
  Serious: No
  Sender: FDA-Public Use
  Company Number: US-SLATERUN-2024SRREG00052

PATIENT
  Age: 62 Year
  Sex: Female
  Weight: 225 kg

DRUGS (3)
  1. METOPROLOL SUCCINATE [Suspect]
     Active Substance: METOPROLOL SUCCINATE
     Indication: Blood pressure measurement
     Route: 065
  2. PHENYLBUTAZONE [Concomitant]
     Active Substance: PHENYLBUTAZONE
     Indication: Blood cholesterol
     Route: 065
  3. EZETIMIBE [Concomitant]
     Active Substance: EZETIMIBE
     Indication: Blood cholesterol
     Route: 065

REACTIONS (4)
  - Therapeutic response changed [Unknown]
  - Headache [Unknown]
  - Product substitution issue [Unknown]
  - Extra dose administered [Unknown]
